FAERS Safety Report 7606762-4 (Version None)
Quarter: 2011Q3

REPORT INFORMATION
  Report Type: 
  Country: None (occurrence: None)
  Receive Date: 20110712
  Receipt Date: 20110712
  Transmission Date: 20111222
  Serious: Yes (Life-Threatening, Hospitalization)
  Sender: FDA-Public Use
  Company Number: None

PATIENT
  Age: 64 Year
  Sex: Male
  Weight: 99.5 kg

DRUGS (2)
  1. LISINOPRIL [Suspect]
     Indication: DIABETES MELLITUS
     Dosage: 10D MG EVERY DAY PO
     Route: 048
     Dates: start: 20010209, end: 20110626
  2. LISINOPRIL [Suspect]
     Indication: HYPERTENSION
     Dosage: 10D MG EVERY DAY PO
     Route: 048
     Dates: start: 20010209, end: 20110626

REACTIONS (1)
  - ANGIOEDEMA [None]
